FAERS Safety Report 8074078-0 (Version None)
Quarter: 2012Q1

REPORT INFORMATION
  Report Type: 
  Country: None (occurrence: None)
  Receive Date: 20120126
  Receipt Date: 20120123
  Transmission Date: 20120608
  Serious: Yes (Death)
  Sender: FDA-Public Use
  Company Number: US-CELGENEUS-163-21880-12012345

PATIENT
  Sex: Female

DRUGS (8)
  1. SEROQUEL [Concomitant]
     Route: 065
  2. MULTI-VITAMINS [Concomitant]
     Route: 065
  3. VELCADE [Concomitant]
     Route: 065
  4. NAMENDA [Concomitant]
     Route: 065
  5. ARICEPT [Concomitant]
     Route: 065
  6. PREDNISONE TAB [Concomitant]
     Route: 065
  7. REVLIMID [Suspect]
     Indication: MULTIPLE MYELOMA
     Dosage: 10 MILLIGRAM
     Route: 048
     Dates: start: 20111228
  8. BAYER BACK + BODY PAIN [Concomitant]
     Route: 065

REACTIONS (1)
  - DEATH [None]
